FAERS Safety Report 5954468-X (Version None)
Quarter: 2008Q4

REPORT INFORMATION
  Report Type: 
  Country: None (occurrence: None)
  Receive Date: 20081113
  Receipt Date: 20081107
  Transmission Date: 20090506
  Serious: Yes (Hospitalization)
  Sender: FDA-Public Use
  Company Number: 2008SP011060

PATIENT
  Age: 58 Year
  Sex: Male
  Weight: 75.9 kg

DRUGS (11)
  1. RIBAVIRIN [Suspect]
     Indication: HEPATITIS C
     Dosage: 400 MG;BID;PO
     Route: 048
     Dates: start: 20071219
  2. INTERFERON BETA (INTERFERON BETA) [Concomitant]
     Indication: HEPATITIS C
     Dosage: IV
     Route: 042
     Dates: start: 20071219
  3. PROMAC [Concomitant]
  4. ALPRAZOLAM [Concomitant]
  5. ROHYPNOL [Concomitant]
  6. MYSLEE [Concomitant]
  7. VOLTAREN [Concomitant]
  8. ZYLORIC [Concomitant]
  9. URSO 250 [Concomitant]
  10. MOHRUS TAPE [Concomitant]
  11. ALOSENN [Concomitant]

REACTIONS (2)
  - CALCULUS URINARY [None]
  - HYPERTHYROIDISM [None]
